FAERS Safety Report 4389853-3 (Version None)
Quarter: 2004Q2

REPORT INFORMATION
  Report Type: 
  Country: None (occurrence: None)
  Receive Date: 20040630
  Receipt Date: 20040617
  Transmission Date: 20050107
  Serious: Yes (Other)
  Sender: FDA-Public Use
  Company Number: US-JNJFOC-20040604640

PATIENT
  Age: 70 Year
  Sex: Male

DRUGS (2)
  1. DURAGESIC [Suspect]
     Indication: CANCER PAIN
     Dosage: 25 UG/HR, 1 IN 72 HOUR, TRANSDERMAL
     Route: 062
     Dates: start: 20030601
  2. OXYCODONE HCL [Suspect]
     Indication: PAIN
     Dosage: ORAL
     Route: 048
     Dates: start: 20040601, end: 20040601

REACTIONS (4)
  - BODY TEMPERATURE INCREASED [None]
  - CONVULSION [None]
  - DRUG EFFECT DECREASED [None]
  - URINARY RETENTION [None]
